FAERS Safety Report 9672240 (Version 1)
Quarter: 2013Q4

REPORT INFORMATION
  Report Type: Spontaneous
  Country: CO (occurrence: CO)
  Receive Date: 20131106
  Receipt Date: 20131106
  Transmission Date: 20140711
  Serious: Yes (Life-Threatening, Hospitalization)
  Sender: FDA-Public Use
  Company Number: CO-BAXTER-2013BAX043033

PATIENT
  Age: 49 Year
  Sex: Male
  Weight: 60 kg

DRUGS (1)
  1. CLORURO DE SODIO 0.9% [Suspect]
     Indication: PRODUCT USED FOR UNKNOWN INDICATION
     Route: 042
     Dates: start: 20131029

REACTIONS (4)
  - Dyspnoea [Recovered/Resolved]
  - Aphasia [Recovered/Resolved]
  - Cyanosis central [Recovered/Resolved]
  - Respiratory arrest [Recovered/Resolved]
